FAERS Safety Report 8321575-6 (Version None)
Quarter: 2012Q2

REPORT INFORMATION
  Report Type: 
  Country: None (occurrence: None)
  Receive Date: 20120430
  Receipt Date: 20120423
  Transmission Date: 20120825
  Serious: No
  Sender: FDA-Public Use
  Company Number: US-BAYER-2012-040976

PATIENT
  Age: 46 Year
  Sex: Female

DRUGS (2)
  1. MAGNEVIST [Suspect]
     Indication: NUCLEAR MAGNETIC RESONANCE IMAGING
     Dosage: UNK
     Route: 042
     Dates: start: 20120423, end: 20120423
  2. MAGNEVIST [Suspect]
     Dosage: UNK
     Dates: start: 20120423, end: 20120423

REACTIONS (2)
  - PRURITUS [None]
  - RASH [None]
